FAERS Safety Report 7555160-0 (Version None)
Quarter: 2011Q2

REPORT INFORMATION
  Report Type: 
  Country: None (occurrence: None)
  Receive Date: 20110617
  Receipt Date: 20110615
  Transmission Date: 20111010
  Serious: No
  Sender: FDA-Public Use
  Company Number: KR-ABBOTT-11P-090-0696003-00

PATIENT
  Age: 55 Year
  Sex: Female

DRUGS (3)
  1. HUMIRA [Suspect]
     Route: 058
     Dates: start: 20101221
  2. HUMIRA [Suspect]
     Indication: RHEUMATOID ARTHRITIS
     Route: 058
  3. MEDICINE FOR THYROID [Concomitant]
     Indication: THYROID OPERATION
     Route: 048

REACTIONS (2)
  - PRURITUS GENERALISED [None]
  - PRURITUS [None]
